FAERS Safety Report 8196290-2 (Version None)
Quarter: 2012Q1

REPORT INFORMATION
  Report Type: 
  Country: None (occurrence: None)
  Receive Date: 20120306
  Receipt Date: 20120223
  Transmission Date: 20120608
  Serious: Yes (Other)
  Sender: FDA-Public Use
  Company Number: 2012SP010174

PATIENT
  Age: 47 Year
  Sex: Female

DRUGS (3)
  1. NALOXONE [Suspect]
     Dosage: IV
     Route: 042
     Dates: start: 20120216, end: 20120217
  2. NORCURON [Suspect]
     Dosage: 0.1 MG; TID
     Dates: start: 20120216, end: 20120216
  3. METHADON HCL TAB [Concomitant]

REACTIONS (6)
  - MIOSIS [None]
  - ACCIDENTAL OVERDOSE [None]
  - SOMNOLENCE [None]
  - BRADYPNOEA [None]
  - DRUG LABEL CONFUSION [None]
  - MEDICATION ERROR [None]
